FAERS Safety Report 4742761-8 (Version None)
Quarter: 2005Q3

REPORT INFORMATION
  Report Type: 
  Country: None (occurrence: None)
  Receive Date: 20050811
  Receipt Date: 20050413
  Transmission Date: 20060218
  Serious: Yes (Hospitalization)
  Sender: FDA-Public Use
  Company Number: US-MERCK-0504USA02060

PATIENT
  Age: 71 Year
  Sex: Female
  Weight: 86 kg

DRUGS (15)
  1. FOLIC ACID [Concomitant]
     Indication: VITAMIN SUPPLEMENTATION
     Route: 065
  2. CELEBREX [Concomitant]
     Route: 065
  3. ATENOLOL [Concomitant]
     Route: 065
     Dates: start: 19980812, end: 20041021
  4. HALOPERIDOL [Concomitant]
     Indication: INSOMNIA
     Route: 065
  5. TEMAZEPAM [Concomitant]
     Route: 065
  6. VIOXX [Suspect]
     Indication: ARTHRITIS
     Route: 048
     Dates: start: 20000405, end: 20011001
  7. GLUCOPHAGE [Concomitant]
     Route: 065
     Dates: start: 20010301
  8. GLIPIZIDE [Concomitant]
     Route: 065
  9. GUAIFENESIN [Concomitant]
     Indication: ANTITUSSIVE THERAPY
     Route: 065
  10. TRAZODONE HYDROCHLORIDE [Concomitant]
     Route: 065
  11. FUROSEMIDE [Concomitant]
     Route: 065
  12. [THERAPY UNSPECIFIED] [Concomitant]
     Route: 065
  13. ALPRAZOLAM [Concomitant]
     Indication: ANXIETY
     Route: 065
  14. LIPITOR [Concomitant]
     Route: 065
     Dates: start: 19990831
  15. PREVACID [Concomitant]
     Route: 065

REACTIONS (9)
  - ARRHYTHMIA [None]
  - BACTERIAL INFECTION [None]
  - CARDIAC VALVE DISEASE [None]
  - CEREBROVASCULAR ACCIDENT [None]
  - GASTRIC DISORDER [None]
  - HYPERSENSITIVITY [None]
  - NASOPHARYNGITIS [None]
  - PAIN [None]
  - URINARY TRACT INFECTION [None]
